FAERS Safety Report 5188533-4 (Version None)
Quarter: 2006Q4

REPORT INFORMATION
  Report Type: 
  Country: None (occurrence: None)
  Receive Date: 20061214
  Receipt Date: 20061129
  Transmission Date: 20070319
  Serious: Yes (Other)
  Sender: FDA-Public Use
  Company Number: DSA_81495_2005

PATIENT
  Age: 50 Year
  Sex: Male
  Weight: 82.1011 kg

DRUGS (4)
  1. XYREM [Suspect]
     Indication: NARCOLEPSY
     Dosage: 6 GM (6GM, 1 IN 1 D), ORAL; 12 GM (4 GM, 3 IN 1 D), ORAL
     Route: 048
     Dates: start: 20050301, end: 20050710
  2. XYREM [Suspect]
     Indication: NARCOLEPSY
     Dosage: 6 GM (6GM, 1 IN 1 D), ORAL; 12 GM (4 GM, 3 IN 1 D), ORAL
     Route: 048
     Dates: start: 20050711, end: 20051101
  3. MODAFINIL (MODAFINIL) (TABLETS) [Concomitant]
  4. MOMETASONE FUROATE [Concomitant]

REACTIONS (2)
  - OEDEMA [None]
  - THROMBOSIS [None]
